FAERS Safety Report 13194494 (Version 1)
Quarter: 2017Q1

REPORT INFORMATION
  Report Type: Spontaneous
  Country: FR (occurrence: FR)
  Receive Date: 20170207
  Receipt Date: 20170207
  Transmission Date: 20170428
  Serious: Yes (Other)
  Sender: FDA-Public Use
  Company Number: FR-JAZZ-2016-FR-001877

PATIENT
  Age: 56 Year
  Sex: Female

DRUGS (10)
  1. PRIALT [Suspect]
     Active Substance: ZICONOTIDE ACETATE
     Dosage: .054 ?G, QH
     Route: 037
     Dates: start: 201510, end: 20151118
  2. MORPHINE SULF [Suspect]
     Active Substance: MORPHINE SULFATE
     Dosage: 0.125 MG, QH
     Dates: start: 20151217
  3. PRIALT [Suspect]
     Active Substance: ZICONOTIDE ACETATE
     Indication: PAIN
     Dosage: UNK ?G, QH
     Route: 037
     Dates: start: 201505, end: 201509
  4. PRIALT [Suspect]
     Active Substance: ZICONOTIDE ACETATE
     Dosage: .054 ?G, QH
     Route: 037
     Dates: start: 201509, end: 201510
  5. MORPHINE SULF [Suspect]
     Active Substance: MORPHINE SULFATE
     Indication: PAIN
     Dosage: 0.09 MG, QH
     Route: 037
     Dates: start: 20151215, end: 20151217
  6. NAROPEINE [Suspect]
     Active Substance: ROPIVACAINE HYDROCHLORIDE
     Dosage: 0.115 MG, QH
     Route: 037
     Dates: start: 20151215, end: 20151217
  7. NAROPEINE [Suspect]
     Active Substance: ROPIVACAINE HYDROCHLORIDE
     Dosage: 0.125 MG, QH
     Dates: start: 20151217
  8. PRIALT [Suspect]
     Active Substance: ZICONOTIDE ACETATE
     Dosage: 0.0625  ?G, QH
     Route: 037
     Dates: start: 20151118, end: 20151215
  9. NAROPEINE [Suspect]
     Active Substance: ROPIVACAINE HYDROCHLORIDE
     Indication: PAIN
     Dosage: UNK MG, QH
  10. PRIALT [Suspect]
     Active Substance: ZICONOTIDE ACETATE
     Dosage: 0.078 ?G, QH
     Route: 037
     Dates: start: 20151215, end: 20151217

REACTIONS (1)
  - Paranoia [Recovered/Resolved]

NARRATIVE: CASE EVENT DATE: 20151215
